FAERS Safety Report 11841395 (Version 1)
Quarter: 2015Q4

REPORT INFORMATION
  Report Type: Spontaneous
  Country: US (occurrence: US)
  Receive Date: 20151216
  Receipt Date: 20151216
  Transmission Date: 20160305
  Serious: No
  Sender: FDA-Public Use
  Company Number: US-BAUSCH-SP08958

PATIENT
  Age: 72 Year
  Sex: Male
  Weight: 86.26 kg

DRUGS (6)
  1. APRISO [Suspect]
     Active Substance: MESALAMINE
     Indication: COLITIS ULCERATIVE
     Route: 048
     Dates: start: 201404
  2. AZATHIOPRINE. [Concomitant]
     Active Substance: AZATHIOPRINE
     Indication: CROHN^S DISEASE
  3. JANUVIA [Concomitant]
     Active Substance: SITAGLIPTIN PHOSPHATE
     Indication: DIABETES MELLITUS
  4. METOPROLOL [Concomitant]
     Active Substance: METOPROLOL
     Indication: HEART RATE IRREGULAR
  5. AZATHIOPRINE. [Concomitant]
     Active Substance: AZATHIOPRINE
     Indication: COLITIS ULCERATIVE
  6. LANTUS [Concomitant]
     Active Substance: INSULIN GLARGINE
     Indication: DIABETES MELLITUS

REACTIONS (1)
  - Myalgia [Not Recovered/Not Resolved]

NARRATIVE: CASE EVENT DATE: 201412
